FAERS Safety Report 9612373 (Version 1)
Quarter: 2013Q4

REPORT INFORMATION
  Report Type: Report from Study
  Country: CA (occurrence: CA)
  Receive Date: 20131010
  Receipt Date: 20131010
  Transmission Date: 20140711
  Serious: Yes (Hospitalization)
  Sender: FDA-Public Use
  Company Number: CA-ROCHE-1284728

PATIENT
  Age: 58 Year
  Sex: Female

DRUGS (12)
  1. BEVACIZUMAB [Suspect]
     Indication: PRODUCT USED FOR UNKNOWN INDICATION
     Dosage: THERAPY DURATION:  99.0 DAY(S)
     Route: 042
  2. CYCLOPHOSPHAMIDE [Suspect]
     Indication: PRODUCT USED FOR UNKNOWN INDICATION
     Route: 042
  3. CYCLOPHOSPHAMIDE [Suspect]
     Route: 042
  4. DOCETAXEL [Suspect]
     Indication: PRODUCT USED FOR UNKNOWN INDICATION
     Route: 042
  5. EPIRUBICIN HCL [Suspect]
     Indication: PRODUCT USED FOR UNKNOWN INDICATION
     Route: 042
  6. EPIRUBICIN HCL [Suspect]
     Route: 042
  7. FLUOROURACIL [Suspect]
     Indication: PRODUCT USED FOR UNKNOWN INDICATION
     Route: 042
  8. IBUPROFEN [Concomitant]
     Route: 065
  9. NEULASTA [Concomitant]
     Route: 058
  10. ONDANSETRON [Concomitant]
     Route: 065
  11. PROCHLORPERAZINE [Concomitant]
     Route: 065
  12. ZOLOFT [Concomitant]

REACTIONS (9)
  - Anaemia [Unknown]
  - Constipation [Unknown]
  - Dehydration [Unknown]
  - Dyspnoea [Unknown]
  - Gastritis [Unknown]
  - Mucosal inflammation [Unknown]
  - Neutropenia [Unknown]
  - Pulmonary oedema [Unknown]
  - Pyrexia [Unknown]
